FAERS Safety Report 8537031-6 (Version None)
Quarter: 2012Q3

REPORT INFORMATION
  Report Type: 
  Country: None (occurrence: None)
  Receive Date: 20120725
  Receipt Date: 20120719
  Transmission Date: 20120928
  Serious: Yes (Other)
  Sender: FDA-Public Use
  Company Number: US-PFIZER INC-2012175263

PATIENT
  Sex: Male

DRUGS (1)
  1. VIAGRA [Suspect]
     Dosage: 200 MG (TWO TABLETS OF 100MG), 1X/DAY
     Route: 048
     Dates: start: 20120101

REACTIONS (1)
  - MUSCULOSKELETAL DISORDER [None]
